FAERS Safety Report 6315231-3 (Version None)
Quarter: 2009Q3

REPORT INFORMATION
  Report Type: 
  Country: None (occurrence: None)
  Receive Date: 20090819
  Receipt Date: 20090810
  Transmission Date: 20100115
  Serious: Yes (Other)
  Sender: FDA-Public Use
  Company Number: PHHY2009JP28657

PATIENT
  Age: 46 Year
  Sex: Male

DRUGS (4)
  1. NEORAL [Suspect]
     Indication: RENAL TRANSPLANT
     Dosage: UNK
  2. CLARITH [Interacting]
     Indication: HELICOBACTER INFECTION
     Route: 048
  3. SAWACILLIN [Concomitant]
     Indication: HELICOBACTER INFECTION
  4. TAKEPRON [Concomitant]
     Indication: HELICOBACTER INFECTION

REACTIONS (6)
  - BLOOD CREATININE INCREASED [None]
  - DUODENAL ULCER [None]
  - HELICOBACTER INFECTION [None]
  - IMMUNOSUPPRESSANT DRUG LEVEL INCREASED [None]
  - INHIBITORY DRUG INTERACTION [None]
  - NEPHROPATHY TOXIC [None]
